FAERS Safety Report 23069117 (Version 1)
Quarter: 2023Q4

REPORT INFORMATION
  Report Type: Spontaneous
  Country: US (occurrence: US)
  Receive Date: 20231016
  Receipt Date: 20231016
  Transmission Date: 20240109
  Serious: Yes (Other)
  Sender: FDA-Public Use
  Company Number: US-PFIZER INC-PV202300165229

PATIENT
  Age: 65 Year
  Sex: Female

DRUGS (1)
  1. TALZENNA [Suspect]
     Active Substance: TALAZOPARIB TOSYLATE
     Dosage: DAILY ON DAYS 1-7 OF EACH 21 DAY CYCLE
     Route: 048

REACTIONS (2)
  - Hepatitis viral [Unknown]
  - Off label use [Unknown]
